FAERS Safety Report 16198463 (Version 1)
Quarter: 2019Q2

REPORT INFORMATION
  Report Type: Spontaneous
  Country: SI (occurrence: SI)
  Receive Date: 20190415
  Receipt Date: 20190415
  Transmission Date: 20190711
  Serious: Yes (Death, Other)
  Sender: FDA-Public Use
  Company Number: SI-PFIZER INC-2019156903

PATIENT
  Age: 77 Year
  Sex: Female

DRUGS (3)
  1. CYCLOSPORIN [Suspect]
     Active Substance: CYCLOSPORINE
     Indication: DERMATOMYOSITIS
  2. METHOTREXATE. [Suspect]
     Active Substance: METHOTREXATE
     Indication: DERMATOMYOSITIS
  3. MEDROL [Suspect]
     Active Substance: METHYLPREDNISOLONE
     Indication: DERMATOMYOSITIS

REACTIONS (6)
  - Pneumocystis jirovecii pneumonia [Unknown]
  - Bronchopulmonary aspergillosis [Unknown]
  - Influenza [Unknown]
  - Cytomegalovirus infection [Unknown]
  - Bacterial sepsis [Fatal]
  - Infection [Unknown]

NARRATIVE: CASE EVENT DATE: 201812
